FAERS Safety Report 14907359 (Version 6)
Quarter: 2018Q3

REPORT INFORMATION
  Report Type: Spontaneous
  Country: US (occurrence: US)
  Receive Date: 20180517
  Receipt Date: 20180801
  Transmission Date: 20181010
  Serious: Yes (Hospitalization, Other)
  Sender: FDA-Public Use
  Company Number: US-ASTRAZENECA-2018SE63620

PATIENT
  Age: 29905 Day
  Sex: Male
  Weight: 88.8 kg

DRUGS (23)
  1. ALBUTEROL SULFATE. [Concomitant]
     Active Substance: ALBUTEROL SULFATE
     Indication: CHRONIC OBSTRUCTIVE PULMONARY DISEASE
     Dosage: 3?4 TIMES DAILY
     Route: 055
  2. SSKI [Concomitant]
     Active Substance: POTASSIUM IODIDE
     Dosage: 7 DROPS IN LIQ. JUICE PO DAILY
     Route: 048
  3. BEVESPI AEROSPHERE [Suspect]
     Active Substance: FORMOTEROL FUMARATE\GLYCOPYRROLATE
     Indication: CHRONIC OBSTRUCTIVE PULMONARY DISEASE
     Dosage: 9/4.8 MCG, 2 PUFFS, TWO TIMES A DAY
     Route: 055
     Dates: start: 20180501
  4. OMEPRAZOLE. [Suspect]
     Active Substance: OMEPRAZOLE
     Route: 048
  5. ASPIRIN. [Concomitant]
     Active Substance: ASPIRIN
     Route: 048
  6. DILTIAZEM HYDROCHLORIDE. [Concomitant]
     Active Substance: DILTIAZEM HYDROCHLORIDE
     Route: 048
  7. VESICARE [Concomitant]
     Active Substance: SOLIFENACIN SUCCINATE
     Route: 048
  8. ALBUTEROL SULFATE. [Concomitant]
     Active Substance: ALBUTEROL SULFATE
     Indication: CHRONIC OBSTRUCTIVE PULMONARY DISEASE
     Dosage: .05 CC TWO TIMES DAILY MIXED ITH NS SOL AS NEB
     Route: 055
  9. ALLOPURINOL. [Concomitant]
     Active Substance: ALLOPURINOL
     Route: 048
     Dates: start: 20101008
  10. IPRATROPIUM?ALBUTEROL [Concomitant]
     Active Substance: ALBUTEROL\IPRATROPIUM
     Indication: DYSPNOEA
     Dosage: 0.50?2.5 (3) MG/3ML FOUR TIMES DAILY NEBS
     Route: 055
  11. BEVESPI AEROSPHERE [Suspect]
     Active Substance: FORMOTEROL FUMARATE\GLYCOPYRROLATE
     Indication: PULMONARY HYPERTENSION
     Dosage: 9/4.8 MCG, 2 PUFFS, TWO TIMES A DAY
     Route: 055
     Dates: start: 20180501
  12. LOSARTAN POTASSIUM. [Concomitant]
     Active Substance: LOSARTAN POTASSIUM
     Route: 048
  13. ELIQUIS [Concomitant]
     Active Substance: APIXABAN
     Route: 048
  14. METOPROLOL SUCCINATE. [Suspect]
     Active Substance: METOPROLOL SUCCINATE
     Route: 048
  15. DALIRESP [Suspect]
     Active Substance: ROFLUMILAST
     Dosage: 500 MCG 1 DAILY
     Route: 048
  16. MULTIVITAMINS [Concomitant]
     Active Substance: VITAMINS
     Route: 048
  17. BICALUTAMIDE. [Suspect]
     Active Substance: BICALUTAMIDE
     Indication: CHRONIC OBSTRUCTIVE PULMONARY DISEASE
     Route: 048
  18. ALBUTEROL SULFATE. [Concomitant]
     Active Substance: ALBUTEROL SULFATE
     Indication: WHEEZING
     Dosage: 3?4 TIMES DAILY
     Route: 055
  19. FLOMAX [Concomitant]
     Active Substance: TAMSULOSIN HYDROCHLORIDE
     Route: 048
  20. VENTOLIN HFA [Concomitant]
     Active Substance: ALBUTEROL SULFATE
     Indication: WHEEZING
     Dosage: 108 (90 BASE) MCG/ACT 2 PUFFS EVERY 4?6 HRS AS NEEDED
     Route: 055
  21. FUROSEMIDE. [Concomitant]
     Active Substance: FUROSEMIDE
     Route: 048
  22. ALBUTEROL SULFATE. [Concomitant]
     Active Substance: ALBUTEROL SULFATE
     Indication: WHEEZING
     Dosage: .05 CC TWO TIMES DAILY MIXED ITH NS SOL AS NEB
     Route: 055
  23. IPRATROPIUM?ALBUTEROL [Concomitant]
     Active Substance: ALBUTEROL\IPRATROPIUM
     Indication: CHRONIC OBSTRUCTIVE PULMONARY DISEASE
     Dosage: 0.50?2.5 (3) MG/3ML FOUR TIMES DAILY NEBS
     Route: 055

REACTIONS (29)
  - Pneumonia [Unknown]
  - Painful respiration [Unknown]
  - Dyspnoea [Unknown]
  - Chest pain [Unknown]
  - Pulmonary hypertension [Unknown]
  - Prostate cancer [Unknown]
  - Coronary artery disease [Unknown]
  - Electrocardiogram abnormal [Unknown]
  - Hypothyroidism [Unknown]
  - Varicose vein [Unknown]
  - Peripheral vascular disorder [Unknown]
  - Overweight [Unknown]
  - Pulmonary mass [Unknown]
  - Sleep apnoea syndrome [Unknown]
  - Hyperkeratosis [Unknown]
  - Gout [Unknown]
  - Blepharitis [Unknown]
  - Chronic obstructive pulmonary disease [Unknown]
  - Onychomycosis [Unknown]
  - Hiatus hernia [Unknown]
  - Wheezing [Unknown]
  - Benign prostatic hyperplasia [Unknown]
  - Palpitations [Unknown]
  - Atrial fibrillation [Recovered/Resolved]
  - Oedema [Unknown]
  - Asthma [Unknown]
  - Arthritis [Unknown]
  - Left ventricular hypertrophy [Unknown]
  - Joint swelling [Unknown]

NARRATIVE: CASE EVENT DATE: 20180508
